FAERS Safety Report 17455762 (Version 1)
Quarter: 2020Q1

REPORT INFORMATION
  Report Type: Spontaneous
  Country: US (occurrence: US)
  Receive Date: 20200225
  Receipt Date: 20200225
  Transmission Date: 20200409
  Serious: Yes (Hospitalization)
  Sender: FDA-Public Use
  Company Number: US-ELI_LILLY_AND_COMPANY-US202002007222

PATIENT
  Sex: Female

DRUGS (11)
  1. FLUPHENAZINE [Concomitant]
     Active Substance: FLUPHENAZINE
  2. HUMALOG [Concomitant]
     Active Substance: INSULIN LISPRO
  3. PANTOPRAZOLE [Concomitant]
     Active Substance: PANTOPRAZOLE
  4. FERROUS SULFATE. [Concomitant]
     Active Substance: FERROUS SULFATE
  5. ZOSYN [Concomitant]
     Active Substance: PIPERACILLIN SODIUM\TAZOBACTAM SODIUM
  6. ONDANSETRON [Concomitant]
     Active Substance: ONDANSETRON
  7. DIVALPROEX [Concomitant]
     Active Substance: DIVALPROEX SODIUM
  8. ENOXAPARIN [Concomitant]
     Active Substance: ENOXAPARIN
  9. VERZENIO [Suspect]
     Active Substance: ABEMACICLIB
     Indication: BREAST CANCER
     Dosage: 150 MG, BID
     Route: 048
     Dates: start: 20190510
  10. DULOXETINE. [Concomitant]
     Active Substance: DULOXETINE
  11. BENZTROPINE [BENZATROPINE] [Concomitant]
     Active Substance: BENZTROPINE

REACTIONS (3)
  - Dyspnoea [Unknown]
  - Diarrhoea [Unknown]
  - Dehydration [Unknown]

NARRATIVE: CASE EVENT DATE: 20190617
